FAERS Safety Report 22530964 (Version 1)
Quarter: 2023Q2

REPORT INFORMATION
  Report Type: Spontaneous
  Country: IT (occurrence: IT)
  Receive Date: 20230607
  Receipt Date: 20230607
  Transmission Date: 20230721
  Serious: Yes (Other)
  Sender: FDA-Public Use
  Company Number: IT-SUN PHARMACEUTICAL INDUSTRIES LTD-2023RR-392976

PATIENT
  Age: 65 Year
  Sex: Female
  Weight: 66 kg

DRUGS (2)
  1. GEMCITABINE [Suspect]
     Active Substance: GEMCITABINE
     Indication: Precursor B-lymphoblastic lymphoma stage III
     Dosage: DOSAGGIO: 2800 UNITA DI MISURA: MILLIGRAMMI
     Route: 065
  2. DACARBAZINE [Suspect]
     Active Substance: DACARBAZINE
     Indication: Precursor B-lymphoblastic lymphoma stage III
     Dosage: DOSAGGIO: 800 UNITA DI MISURA: MILLIGRAMMI
     Route: 065

REACTIONS (1)
  - Neutropenia [Unknown]

NARRATIVE: CASE EVENT DATE: 20230320
